FAERS Safety Report 5178586-1 (Version None)
Quarter: 2006Q4

REPORT INFORMATION
  Report Type: 
  Country: None (occurrence: None)
  Receive Date: 20061208
  Receipt Date: 20061123
  Transmission Date: 20070319
  Serious: Yes (Hospitalization)
  Sender: FDA-Public Use
  Company Number: 2006RR-04643

PATIENT
  Age: 47 Year
  Sex: Male
  Weight: 50 kg

DRUGS (9)
  1. FLUOXETINE [Suspect]
     Indication: DEPRESSION
     Dosage: 20 MG, BID, ORAL
     Route: 048
     Dates: start: 20011011, end: 20061026
  2. AMLODIPINE [Concomitant]
  3. BENDROFLUAZIDE (BENDROFLUMETHIAZIDE) [Concomitant]
  4. ACETAMINOPHEN [Concomitant]
  5. CODEINE PHOSPHATE (CODEINE PHOSPHATE) [Concomitant]
  6. FOLIC ACID [Concomitant]
  7. RAMIPRIL [Concomitant]
  8. SIMVASTATIN [Concomitant]
  9. THIAMINE [Concomitant]

REACTIONS (5)
  - ASTHENIA [None]
  - DIZZINESS [None]
  - GENERAL PHYSICAL HEALTH DETERIORATION [None]
  - HYPONATRAEMIA [None]
  - VISION BLURRED [None]
